FAERS Safety Report 7895347-0 (Version None)
Quarter: 2011Q4

REPORT INFORMATION
  Report Type: 
  Country: None (occurrence: None)
  Receive Date: 20111106
  Receipt Date: 20110825
  Transmission Date: 20120403
  Serious: No
  Sender: FDA-Public Use
  Company Number: US-AMGEN-USASP2011043564

PATIENT
  Sex: Female

DRUGS (16)
  1. MULTI-VITAMINS [Concomitant]
     Dosage: 1 UNK, QD
  2. LOTREL [Concomitant]
     Dosage: UNK
  3. NEXIUM [Concomitant]
     Dosage: UNK
  4. PERCOCET [Concomitant]
     Dosage: UNK
  5. VITAMIN B12                        /00056201/ [Concomitant]
     Dosage: UNK
  6. VITAMIN B6 [Concomitant]
     Dosage: UNK
  7. FOLIC ACID [Concomitant]
     Dosage: UNK
  8. STARLIX [Concomitant]
     Dosage: UNK
  9. PROLIA [Suspect]
     Indication: OSTEOPOROSIS PROPHYLAXIS
     Dosage: UNK
  10. ENBREL [Suspect]
     Indication: PSORIATIC ARTHROPATHY
     Dosage: 50 MG, QWK
     Dates: end: 20110701
  11. CALCIUM [Concomitant]
     Dosage: UNK
  12. ZETIA [Concomitant]
     Dosage: UNK
  13. HUMIRA [Concomitant]
  14. PRAVASTATIN [Concomitant]
     Dosage: UNK
  15. TYLENOL (CAPLET) [Concomitant]
     Dosage: UNK
  16. ACTOS [Concomitant]
     Dosage: UNK

REACTIONS (4)
  - GOUT [None]
  - THERAPEUTIC RESPONSE DECREASED [None]
  - RHEUMATOID ARTHRITIS [None]
  - OSTEOPOROSIS [None]
